FAERS Safety Report 4300538-1 (Version None)
Quarter: 2004Q1

REPORT INFORMATION
  Report Type: 
  Country: None (occurrence: None)
  Receive Date: 20040218
  Receipt Date: 20040206
  Transmission Date: 20041129
  Serious: Yes (Death, Hospitalization, Other)
  Sender: FDA-Public Use
  Company Number: JP-JNJFOC-20040104956

PATIENT
  Age: 24 Year
  Sex: Male

DRUGS (7)
  1. RISPERDAL (RISPERIDONE) UNSPECIFIED [Suspect]
     Indication: PSYCHOTIC DISORDER
     Dosage: 3 MG, IN 1 DAY, ORAL
     Route: 048
     Dates: end: 20031204
  2. LITHIUM CARBONATE [Suspect]
     Dosage: 600 MG,  IN 1 DAY, ORAL
     Route: 048
     Dates: end: 20031204
  3. PSYCHOTROPIC AGENTS (ANTIPSYCHOTICS) UNSPECIFIED [Concomitant]
  4. NITRAZEPAM (NITRAZEPAM) UNSPECIFIED) [Concomitant]
  5. TRIHEXYPHENIDYL HYDROCHLORIDE (TRIHEXYPHENIDYL HYDROCHLORIDE) UNSPECIF [Concomitant]
  6. LEVOPROME [Concomitant]
  7. FLUNITRAZEPAM (FLUNITRAZEPAM) UNSPECIFIED [Concomitant]

REACTIONS (15)
  - ABULIA [None]
  - ANXIETY [None]
  - AUTISM [None]
  - C-REACTIVE PROTEIN INCREASED [None]
  - CARDIAC ARREST [None]
  - CONDITION AGGRAVATED [None]
  - DEPRESSED LEVEL OF CONSCIOUSNESS [None]
  - DRUG INTERACTION [None]
  - DYSPHAGIA [None]
  - FALL [None]
  - HAEMATURIA [None]
  - INJURY ASPHYXIATION [None]
  - INSOMNIA [None]
  - NEUROLEPTIC MALIGNANT SYNDROME [None]
  - PSYCHOTIC DISORDER [None]
